FAERS Safety Report 14716218 (Version 1)
Quarter: 2018Q2

REPORT INFORMATION
  Report Type: Spontaneous
  Country: DE (occurrence: DE)
  Receive Date: 20180404
  Receipt Date: 20180404
  Transmission Date: 20180711
  Serious: Yes (Hospitalization)
  Sender: FDA-Public Use
  Company Number: DE-MYLANLABS-2018M1020531

PATIENT
  Age: 7 Year
  Sex: Male

DRUGS (2)
  1. DAPSONE. [Concomitant]
     Active Substance: DAPSONE
     Indication: ACUTE LYMPHOCYTIC LEUKAEMIA
     Dosage: UNK
  2. METHOTREXATE. [Suspect]
     Active Substance: METHOTREXATE
     Indication: ACUTE LYMPHOCYTIC LEUKAEMIA
     Dosage: UNK

REACTIONS (6)
  - Granuloma [Unknown]
  - Toxicity to various agents [Unknown]
  - Respiratory failure [Unknown]
  - Pneumonitis [Unknown]
  - Pneumonia cryptococcal [Unknown]
  - Encephalopathy [Unknown]
